FAERS Safety Report 5381142-3 (Version None)
Quarter: 2007Q3

REPORT INFORMATION
  Report Type: 
  Country: None (occurrence: None)
  Receive Date: 20070706
  Receipt Date: 20070626
  Transmission Date: 20080115
  Serious: Yes (Hospitalization, Other)
  Sender: FDA-Public Use
  Company Number: US-PFIZER INC-2007047944

PATIENT
  Sex: Female
  Weight: 89.2 kg

DRUGS (14)
  1. SUTENT [Suspect]
     Indication: LEIOMYOSARCOMA
     Route: 048
  2. DOCETAXEL [Suspect]
     Indication: LEIOMYOSARCOMA
     Route: 042
  3. LIPITOR [Concomitant]
     Indication: HYPERCHOLESTEROLAEMIA
     Route: 048
  4. ATENOLOL [Concomitant]
     Indication: HYPERTENSION
     Route: 048
     Dates: start: 20030101
  5. IMIPRAMINE [Concomitant]
     Indication: DEPRESSION
     Route: 048
     Dates: start: 19870101
  6. HYDROCHLOROTHIAZIDE [Concomitant]
     Indication: HYPERTENSION
     Route: 048
     Dates: start: 20040101
  7. DEXAMETHASONE [Concomitant]
     Indication: PREMEDICATION
     Route: 048
     Dates: start: 20070326
  8. TYLENOL [Concomitant]
     Indication: PAIN
     Dosage: TEXT:500-1000MG
     Route: 048
     Dates: start: 20030101
  9. LORAZEPAM [Concomitant]
     Indication: NAUSEA
     Route: 048
     Dates: start: 20070327
  10. DOLASETRON [Concomitant]
     Indication: NAUSEA
     Route: 048
     Dates: start: 20070327
  11. IBUPROFEN [Concomitant]
     Indication: PAIN
     Route: 048
     Dates: start: 20030101
  12. VITAMIN CAP [Concomitant]
     Indication: SUPPLEMENTATION THERAPY
     Route: 048
     Dates: start: 19970101
  13. POTASSIUM CHLORIDE [Concomitant]
     Indication: HYPOKALAEMIA
     Route: 048
     Dates: start: 20070504
  14. NYSTATIN [Concomitant]
     Indication: CANDIDIASIS
     Dosage: TEXT:1-2TSP
     Route: 048
     Dates: start: 20070518

REACTIONS (2)
  - FEBRILE NEUTROPENIA [None]
  - INFECTION [None]
